FAERS Safety Report 25923280 (Version 1)
Quarter: 2025Q4

REPORT INFORMATION
  Report Type: Spontaneous
  Country: US (occurrence: US)
  Receive Date: 20251015
  Receipt Date: 20251015
  Transmission Date: 20260117
  Serious: No
  Sender: ELI LILLY AND COMPANY
  Company Number: US-ELI_LILLY_AND_COMPANY-US202510008207

PATIENT
  Age: 41 Year
  Sex: Female

DRUGS (4)
  1. MOUNJARO [Suspect]
     Active Substance: TIRZEPATIDE
     Indication: Pruritus
     Dosage: 7.5 MG, WEEKLY (1/W)
     Route: 065
     Dates: start: 20250928
  2. MOUNJARO [Suspect]
     Active Substance: TIRZEPATIDE
     Indication: Pruritus
     Dosage: 7.5 MG, WEEKLY (1/W)
     Route: 065
     Dates: start: 20250928
  3. MOUNJARO [Suspect]
     Active Substance: TIRZEPATIDE
     Indication: Rash
  4. MOUNJARO [Suspect]
     Active Substance: TIRZEPATIDE
     Indication: Rash

REACTIONS (2)
  - Off label use [Unknown]
  - Rash pruritic [Not Recovered/Not Resolved]

NARRATIVE: CASE EVENT DATE: 20250928
